FAERS Safety Report 19776015 (Version 1)
Quarter: 2021Q3

REPORT INFORMATION
  Report Type: Spontaneous
  Country: CN (occurrence: CN)
  Receive Date: 20210901
  Receipt Date: 20210901
  Transmission Date: 20211014
  Serious: Yes (Hospitalization, Other)
  Sender: FDA-Public Use
  Company Number: CN-BAYER-2021-202956

PATIENT
  Age: 26 Year
  Sex: Female
  Weight: 44 kg

DRUGS (1)
  1. STIVARGA [Suspect]
     Active Substance: REGORAFENIB
     Indication: TARGETED CANCER THERAPY
     Dosage: 120 MG, QD
     Route: 048
     Dates: start: 20210320, end: 20210401

REACTIONS (4)
  - Miliaria [Recovering/Resolving]
  - Pain of skin [None]
  - Off label use [None]
  - Dermatitis bullous [None]

NARRATIVE: CASE EVENT DATE: 20210320
